FAERS Safety Report 11536514 (Version 1)
Quarter: 2015Q3

REPORT INFORMATION
  Report Type: Report from Study
  Country: FR (occurrence: FR)
  Receive Date: 20150922
  Receipt Date: 20150922
  Transmission Date: 20151125
  Serious: Yes (Death, Hospitalization, Other)
  Sender: FDA-Public Use
  Company Number: FR-BAYER-2015-410797

PATIENT
  Age: 72 Year
  Sex: Female
  Weight: 45 kg

DRUGS (7)
  1. SOLUPRED [PREDNISOLONE] [Concomitant]
     Active Substance: PREDNISOLONE
     Dosage: 40 MG/DAY
     Dates: start: 20150616
  2. LASILIX [Concomitant]
     Active Substance: FUROSEMIDE
     Dosage: 40 MG/DAY
     Dates: start: 20150616
  3. INNOHEP [Concomitant]
     Active Substance: TINZAPARIN SODIUM
     Dosage: 0.4 ML
  4. PECFENT [Concomitant]
     Active Substance: FENTANYL CITRATE
     Dosage: 100 ?G
  5. DUROGESIC [Concomitant]
     Active Substance: FENTANYL
     Dosage: 25 MG
  6. SORAFENIB (RAF KINASE INHIBITOR) [Suspect]
     Active Substance: SORAFENIB
     Dosage: 800 MG, QD
     Route: 048
     Dates: start: 20150814, end: 20150825
  7. DEROXAT [Concomitant]
     Active Substance: PAROXETINE HYDROCHLORIDE
     Dosage: 20 MG/DAY
     Dates: start: 20150521

REACTIONS (3)
  - Acute coronary syndrome [Fatal]
  - Cardiogenic shock [None]
  - General physical health deterioration [None]

NARRATIVE: CASE EVENT DATE: 20150826
